FAERS Safety Report 21967373 (Version 1)
Quarter: 2023Q1

REPORT INFORMATION
  Report Type: Spontaneous
  Country: US (occurrence: None)
  Receive Date: 20230207
  Receipt Date: 20230207
  Transmission Date: 20230417
  Serious: Yes (Other)
  Sender: FDA-Public Use
  Company Number: None

PATIENT
  Age: 72 Year
  Sex: Female

DRUGS (1)
  1. CAPECITABINE [Suspect]
     Active Substance: CAPECITABINE
     Dosage: FREQUENCY : TWICE A DAY;?
     Route: 048
     Dates: start: 20220707

REACTIONS (11)
  - Fatigue [None]
  - Nausea [None]
  - Arthritis [None]
  - Arthralgia [None]
  - Pain [None]
  - Neuropathy peripheral [None]
  - Skin exfoliation [None]
  - Dysphonia [None]
  - Headache [None]
  - Thrombosis [None]
  - Therapy interrupted [None]

NARRATIVE: CASE EVENT DATE: 20220711
